FAERS Safety Report 13126702 (Version 1)
Quarter: 2017Q1

REPORT INFORMATION
  Report Type: Spontaneous
  Country: US (occurrence: US)
  Receive Date: 20170118
  Receipt Date: 20170118
  Transmission Date: 20170428
  Serious: No
  Sender: FDA-Public Use
  Company Number: US-ROCHE-1723253

PATIENT
  Sex: Female

DRUGS (1)
  1. RITUXAN [Suspect]
     Active Substance: RITUXIMAB
     Indication: GRANULOMATOSIS WITH POLYANGIITIS
     Dosage: ONCE A WEEK FOR 4 WEEKS
     Route: 042

REACTIONS (5)
  - Gastric disorder [Unknown]
  - Influenza like illness [Unknown]
  - Headache [Unknown]
  - Fatigue [Unknown]
  - Epistaxis [Unknown]
